FAERS Safety Report 12799281 (Version 1)
Quarter: 2016Q3

REPORT INFORMATION
  Report Type: Spontaneous
  Country: US (occurrence: US)
  Receive Date: 20160930
  Receipt Date: 20160930
  Transmission Date: 20161109
  Serious: No
  Sender: FDA-Public Use
  Company Number: US-ENDO PHARMACEUTICALS INC.-2016-001468

PATIENT
  Age: 48 Year
  Sex: Female
  Weight: 55.39 kg

DRUGS (1)
  1. DIAZEPAM TABLETS 10 MG [Suspect]
     Active Substance: DIAZEPAM
     Indication: SLEEP DISORDER
     Dosage: A QUARTER OF A TABLET, HALF TABLET OR ONE 10MG TABLET
     Route: 048
     Dates: start: 2001, end: 20160209

REACTIONS (4)
  - Abdominal pain upper [Recovering/Resolving]
  - Wrong technique in product usage process [None]
  - Off label use [Not Recovered/Not Resolved]
  - Insomnia [Recovered/Resolved]

NARRATIVE: CASE EVENT DATE: 20160209
